FAERS Safety Report 8494082-8 (Version None)
Quarter: 2012Q2

REPORT INFORMATION
  Report Type: 
  Country: None (occurrence: None)
  Receive Date: 20120629
  Receipt Date: 20120629
  Transmission Date: 20120825
  Serious: No
  Sender: FDA-Public Use
  Company Number: None

PATIENT
  Sex: Male
  Weight: 88.4514 kg

DRUGS (3)
  1. .. [Concomitant]
  2. ULTRAM [Suspect]
     Indication: RHINORRHOEA
     Dosage: ULTRAM 50MG BID BY MOUTH
     Route: 048
     Dates: start: 20090101, end: 20120101
  3. ULTRAM [Suspect]
     Indication: ANTITUSSIVE THERAPY
     Dosage: ULTRAM 50MG BID BY MOUTH
     Route: 048
     Dates: start: 20090101, end: 20120101

REACTIONS (2)
  - SINUS CONGESTION [None]
  - DRUG INEFFECTIVE [None]
